FAERS Safety Report 21045946 (Version 1)
Quarter: 2022Q3

REPORT INFORMATION
  Report Type: Spontaneous
  Country: ES (occurrence: ES)
  Receive Date: 20220706
  Receipt Date: 20220706
  Transmission Date: 20221027
  Serious: Yes (Hospitalization)
  Sender: FDA-Public Use
  Company Number: None

PATIENT
  Age: 57 Year
  Sex: Male

DRUGS (11)
  1. DEXAMETHASONE [Suspect]
     Active Substance: DEXAMETHASONE
     Indication: Small cell lung cancer
     Dosage: 4.0 MG C/12 H
     Route: 065
     Dates: start: 20200902, end: 20210409
  2. PARACETAMOL CINFA [Concomitant]
     Indication: Arthrodesis
     Dosage: 1 G TABLETS EFG, 40 TABLETS
     Route: 065
     Dates: start: 20191223
  3. ADALAT [Concomitant]
     Active Substance: NIFEDIPINE
     Indication: Essential hypertension
     Dosage: 20.0 MG DE (20 MG MODIFIED RELEASE TABLETS, 60 TABLETS)
     Route: 065
     Dates: start: 20200312
  4. FENTANYL [Concomitant]
     Active Substance: FENTANYL
     Indication: Metastasis
     Dosage: TRANSDERMAL PATCHES
     Route: 062
     Dates: start: 20210223
  5. ENALAPRIL [Concomitant]
     Active Substance: ENALAPRIL
     Indication: Hypertension
     Dosage: 56 TABLETS
     Route: 065
     Dates: start: 20200223
  6. SYMBICORT [Concomitant]
     Active Substance: BUDESONIDE\FORMOTEROL FUMARATE DIHYDRATE
     Indication: Lung disorder
     Dosage: 160 MICROGRAMS/4.5 MICROGRAMS/INHALATION, SUSPENSION, 2.0 PUFF C/12 H
     Route: 065
     Dates: start: 20181023
  7. OXITRIL [Concomitant]
     Indication: Metastasis
     Dosage: 60.0 MG DE (60 MG GASTRORESISTANT TABLETS, 56 TABLETS)
     Route: 065
     Dates: start: 20200930
  8. CARVEDILOL [Concomitant]
     Active Substance: CARVEDILOL
     Indication: Essential hypertension
     Dosage: 25.0 MG CO (25 MG TABLETS, 28 TABLETS)
     Route: 065
     Dates: start: 20191223
  9. OMEPRAZOLE [Concomitant]
     Active Substance: OMEPRAZOLE
     Indication: Gastritis
     Dosage: 40.0 MG A-DE
     Route: 065
     Dates: start: 20200527
  10. FENTANILO [FENTANYL] [Concomitant]
     Indication: Metastasis
     Dosage: 1.0 PARCHE C/72 HORAS
     Route: 062
     Dates: start: 20210408
  11. DOXAZOSIN MESYLATE [Concomitant]
     Active Substance: DOXAZOSIN MESYLATE
     Indication: Essential hypertension
     Dosage: 8.0 MG CE
     Route: 065
     Dates: start: 20191008

REACTIONS (1)
  - Hyperglycaemia [Recovered/Resolved]

NARRATIVE: CASE EVENT DATE: 20210409
